FAERS Safety Report 5764526-0 (Version None)
Quarter: 2008Q2

REPORT INFORMATION
  Report Type: 
  Country: None (occurrence: None)
  Receive Date: 20080605
  Receipt Date: 20080407
  Transmission Date: 20081010
  Serious: Yes (Hospitalization)
  Sender: FDA-Public Use
  Company Number: CHPA2008US08907

PATIENT
  Age: 55 Year
  Sex: Male

DRUGS (1)
  1. TRIAMINIC COUGH + SORE THROAT WITHOUT PSE (NCH)(DEXTROMETHORPHAN HYDRO [Suspect]
     Indication: NASOPHARYNGITIS
     Dosage: ORAL
     Route: 048
     Dates: start: 20080206

REACTIONS (13)
  - CHEST PAIN [None]
  - DIPLOPIA [None]
  - DIZZINESS [None]
  - DRUG HYPERSENSITIVITY [None]
  - DYSPNOEA [None]
  - GLAUCOMA [None]
  - HEADACHE [None]
  - HYPERTENSION [None]
  - HYPOAESTHESIA ORAL [None]
  - MENTAL STATUS CHANGES [None]
  - PAIN [None]
  - PARAESTHESIA [None]
  - TRANSIENT ISCHAEMIC ATTACK [None]
